FAERS Safety Report 5280983-0 (Version None)
Quarter: 2007Q1

REPORT INFORMATION
  Report Type: 
  Country: None (occurrence: None)
  Receive Date: 20070329
  Receipt Date: 20070320
  Transmission Date: 20070707
  Serious: Yes (Hospitalization)
  Sender: FDA-Public Use
  Company Number: FR-ABBOTT-07P-056-0362596-00

PATIENT
  Sex: Female

DRUGS (2)
  1. DEPAKINE POWDER [Suspect]
     Indication: PROPHYLAXIS
     Route: 041
     Dates: start: 20070101, end: 20070115
  2. PHENYTOIN [Concomitant]
     Indication: DRUG USE FOR UNKNOWN INDICATION
     Dates: start: 20070115

REACTIONS (3)
  - CEREBRAL HAEMATOMA [None]
  - DEPRESSED LEVEL OF CONSCIOUSNESS [None]
  - ENCEPHALOPATHY [None]
